FAERS Safety Report 10442619 (Version 4)
Quarter: 2014Q4

REPORT INFORMATION
  Report Type: Spontaneous
  Country: JP (occurrence: JP)
  Receive Date: 20140909
  Receipt Date: 20141030
  Transmission Date: 20150528
  Serious: Yes (Death)
  Sender: FDA-Public Use
  Company Number: JP-SA-2014SA121341

PATIENT
  Age: 64 Year
  Sex: Female
  Weight: 41 kg

DRUGS (21)
  1. 5-FU [Suspect]
     Active Substance: FLUOROURACIL
     Indication: PANCREATIC CARCINOMA
     Route: 041
     Dates: start: 20140812, end: 20140812
  2. NAIXAN [Concomitant]
     Active Substance: NAPROXEN SODIUM
     Dates: start: 20140812, end: 20140821
  3. NEU-UP [Concomitant]
     Active Substance: UNSPECIFIED INGREDIENT
     Dates: start: 20140820
  4. LOPEMIN [Concomitant]
     Active Substance: LOPERAMIDE HYDROCHLORIDE
     Route: 048
     Dates: start: 20140812
  5. REMODULIN [Concomitant]
     Active Substance: TREPROSTINIL
     Dates: start: 20140822
  6. CALCIUM LEVOFOLINATE [Concomitant]
     Active Substance: LEVOLEUCOVORIN CALCIUM
     Dosage: INFUSION
     Route: 042
     Dates: start: 20140812, end: 20140812
  7. PROEMEND [Concomitant]
     Active Substance: FOSAPREPITANT
     Dates: start: 20140812, end: 20140812
  8. REBAMIPIDE [Concomitant]
     Active Substance: REBAMIPIDE
     Dates: start: 20140812, end: 20140821
  9. 5-FU [Suspect]
     Active Substance: FLUOROURACIL
     Indication: PANCREATIC CARCINOMA
     Route: 040
     Dates: start: 20140812, end: 20140812
  10. ATORVASTATIN [Concomitant]
     Active Substance: ATORVASTATIN
     Dates: start: 20140812, end: 20140821
  11. PAZUFLOXACIN [Concomitant]
     Active Substance: PAZUFLOXACIN
     Dates: start: 20140822
  12. ELPLAT [Suspect]
     Active Substance: OXALIPLATIN
     Indication: PANCREATIC CARCINOMA
     Route: 041
     Dates: start: 20140812, end: 20140812
  13. TOPOTECIN [Suspect]
     Active Substance: IRINOTECAN HYDROCHLORIDE
     Indication: PANCREATIC CARCINOMA
     Route: 041
     Dates: start: 20140812, end: 20140812
  14. LANSOPRAZOLE. [Concomitant]
     Active Substance: LANSOPRAZOLE
     Dates: start: 20140812, end: 20140821
  15. BUSCOPAN [Concomitant]
     Active Substance: BUTYLSCOPOLAMINE BROMIDE
     Dates: start: 20140812
  16. AMLODIN [Concomitant]
     Active Substance: AMLODIPINE BESYLATE
     Dates: start: 20140812, end: 20140821
  17. CATABON [Concomitant]
     Active Substance: DOPAMINE HYDROCHLORIDE
     Dates: start: 20140822
  18. DECADRON [Concomitant]
     Active Substance: DEXAMETHASONE
     Dates: start: 20140812, end: 20140812
  19. ALOXI [Concomitant]
     Active Substance: PALONOSETRON HYDROCHLORIDE
     Dates: start: 20140812, end: 20140812
  20. AZILVA [Concomitant]
     Active Substance: AZILSARTAN KAMEDOXOMIL
     Dates: start: 20140812, end: 20140821
  21. MEROPEN [Concomitant]
     Active Substance: MEROPENEM
     Dates: start: 20140822

REACTIONS (6)
  - Platelet count decreased [Unknown]
  - White blood cell count decreased [Fatal]
  - Neutrophil count decreased [Fatal]
  - Pneumonia [Fatal]
  - Cholinergic syndrome [Unknown]
  - Diarrhoea [Recovered/Resolved]

NARRATIVE: CASE EVENT DATE: 20140820
